FAERS Safety Report 8442677-X (Version None)
Quarter: 2012Q2

REPORT INFORMATION
  Report Type: 
  Country: None (occurrence: None)
  Receive Date: 20120615
  Receipt Date: 20111205
  Transmission Date: 20120825
  Serious: No
  Sender: FDA-Public Use
  Company Number: US-NOVEN-11US003721

PATIENT
  Sex: Male
  Weight: 45.351 kg

DRUGS (1)
  1. DAYTRANA [Suspect]
     Indication: ATTENTION DEFICIT/HYPERACTIVITY DISORDER
     Dosage: 10 MG, 1 PATCH DAILY FOR 9 HOURS
     Route: 062
     Dates: start: 20111101

REACTIONS (2)
  - AFFECT LABILITY [None]
  - INCORRECT DRUG ADMINISTRATION DURATION [None]
